FAERS Safety Report 21571356 (Version 3)
Quarter: 2023Q4

REPORT INFORMATION
  Report Type: Report from Study
  Country: US (occurrence: US)
  Receive Date: 20221109
  Receipt Date: 20231024
  Transmission Date: 20240109
  Serious: No
  Sender: FDA-Public Use
  Company Number: US-IDORSIA-001773-2022-US

PATIENT
  Age: 68 Year
  Sex: Female

DRUGS (2)
  1. QUVIVIQ [Suspect]
     Active Substance: DARIDOREXANT
     Indication: Insomnia
     Dosage: 50 MG, QD
     Route: 048
     Dates: start: 20221024, end: 20221024
  2. ADVAIR HFA [Concomitant]
     Active Substance: FLUTICASONE PROPIONATE\SALMETEROL XINAFOATE
     Indication: Chronic obstructive pulmonary disease

REACTIONS (8)
  - Hallucination [Recovered/Resolved]
  - Feeling abnormal [Recovered/Resolved]
  - Nightmare [Recovered/Resolved]
  - Screaming [Recovered/Resolved]
  - Dyskinesia [Recovered/Resolved]
  - Chills [Recovered/Resolved]
  - Lethargy [Recovered/Resolved]
  - Fatigue [Recovered/Resolved]

NARRATIVE: CASE EVENT DATE: 20221024
